FAERS Safety Report 5152057-0 (Version None)
Quarter: 2006Q4

REPORT INFORMATION
  Report Type: 
  Country: None (occurrence: None)
  Receive Date: 20061113
  Receipt Date: 20061113
  Transmission Date: 20070319
  Serious: Yes (Hospitalization, Disabling)
  Sender: FDA-Public Use
  Company Number: None

PATIENT
  Sex: Male
  Weight: 77.1115 kg

DRUGS (2)
  1. PAIN NOT PATCHES [Suspect]
     Indication: ARTHRITIS
     Dosage: 1 PATCH  8HRS.  DAILY  EXTERNAL
     Dates: start: 20060310, end: 20060329
  2. PAIN NOT PATCHES [Suspect]
     Indication: BURSITIS
     Dosage: 1 PATCH  8HRS.  DAILY  EXTERNAL
     Dates: start: 20060310, end: 20060329

REACTIONS (5)
  - ASTHENIA [None]
  - BONE SCAN ABNORMAL [None]
  - DRUG EFFECT DECREASED [None]
  - MUSCLE DISORDER [None]
  - NUCLEAR MAGNETIC RESONANCE IMAGING ABNORMAL [None]
